FAERS Safety Report 10097934 (Version 1)
Quarter: 2014Q2

REPORT INFORMATION
  Report Type: Spontaneous
  Country: CN (occurrence: CN)
  Receive Date: 20140423
  Receipt Date: 20140423
  Transmission Date: 20141212
  Serious: Yes (Hospitalization)
  Sender: FDA-Public Use
  Company Number: CN-PFIZER INC-2014107783

PATIENT
  Age: 82 Year
  Sex: Female

DRUGS (1)
  1. DIFLUCAN [Suspect]
     Indication: CANDIDA INFECTION
     Dosage: 200 MG, 2X/DAY
     Route: 041
     Dates: start: 20130304

REACTIONS (3)
  - Platelet count decreased [Recovered/Resolved]
  - Purpura [Recovered/Resolved]
  - Haematuria [Recovered/Resolved]
